FAERS Safety Report 13269910 (Version 1)
Quarter: 2017Q1

REPORT INFORMATION
  Report Type: Spontaneous
  Country: US (occurrence: US)
  Receive Date: 20170224
  Receipt Date: 20170224
  Transmission Date: 20170428
  Serious: No
  Sender: FDA-Public Use
  Company Number: US-TAIHO ONCOLOGY INC-EU-2017-00307

PATIENT
  Age: 84 Year
  Sex: Male

DRUGS (7)
  1. DILTIAZEM. [Concomitant]
     Active Substance: DILTIAZEM
     Dosage: NI
  2. NIACIN. [Concomitant]
     Active Substance: NIACIN
     Dosage: NI
  3. CALCARB [Concomitant]
     Dosage: NI
  4. VITAMIN D3 [Concomitant]
     Active Substance: CHOLECALCIFEROL
     Dosage: NI
  5. PRAVASTATIN. [Concomitant]
     Active Substance: PRAVASTATIN
     Dosage: NI
  6. LONSURF [Suspect]
     Active Substance: TIPIRACIL HYDROCHLORIDE\TRIFLURIDINE
     Indication: COLON CANCER
     Route: 048
     Dates: start: 20161021
  7. OMEPRAZOLE. [Concomitant]
     Active Substance: OMEPRAZOLE
     Dosage: NI

REACTIONS (3)
  - Onychoclasis [Unknown]
  - Fatigue [Unknown]
  - Decreased appetite [None]

NARRATIVE: CASE EVENT DATE: 201701
